FAERS Safety Report 4940039-0 (Version None)
Quarter: 2006Q1

REPORT INFORMATION
  Report Type: 
  Country: None (occurrence: None)
  Receive Date: 20060310
  Receipt Date: 20060224
  Transmission Date: 20060701
  Serious: Yes (Hospitalization)
  Sender: FDA-Public Use
  Company Number: GB-BRISTOL-MYERS SQUIBB COMPANY-13302880

PATIENT
  Age: 81 Year
  Sex: Male

DRUGS (10)
  1. ACETYLSALICYLIC ACID SRT [Suspect]
     Route: 048
     Dates: end: 20060201
  2. WARFARIN SODIUM [Suspect]
     Route: 048
     Dates: end: 20060201
  3. BUDESONIDE [Concomitant]
     Route: 055
  4. SALBUTAMOL [Concomitant]
     Route: 055
  5. SALMETEROL [Concomitant]
     Route: 055
  6. SIMVASTATIN [Concomitant]
     Route: 048
  7. FUROSEMIDE [Concomitant]
     Route: 048
  8. RAMIPRIL [Concomitant]
     Route: 048
  9. AMLODIPINE [Concomitant]
     Route: 048
  10. ACETAMINOPHEN [Concomitant]

REACTIONS (4)
  - HAEMATEMESIS [None]
  - HIATUS HERNIA [None]
  - MELAENA [None]
  - REFLUX OESOPHAGITIS [None]
